FAERS Safety Report 9391024 (Version 1)
Quarter: 2013Q3

REPORT INFORMATION
  Report Type: Spontaneous
  Country: IR (occurrence: IR)
  Receive Date: 20130709
  Receipt Date: 20130709
  Transmission Date: 20140515
  Serious: Yes (Other)
  Sender: FDA-Public Use
  Company Number: IR-JNJFOC-20130700578

PATIENT
  Sex: 0

DRUGS (5)
  1. TOPIRAMATE [Suspect]
     Indication: BIPOLAR I DISORDER
     Route: 048
  2. RISPERIDONE [Suspect]
     Indication: BIPOLAR I DISORDER
     Route: 065
  3. LITHIUM [Suspect]
     Indication: BIPOLAR I DISORDER
     Route: 065
  4. HALOPERIDOL [Concomitant]
     Indication: AGITATION
     Route: 065
  5. BIPERIDEN [Concomitant]
     Indication: EXTRAPYRAMIDAL DISORDER
     Route: 065

REACTIONS (2)
  - Hypoacusis [Recovered/Resolved]
  - Paraesthesia [Recovered/Resolved]
